FAERS Safety Report 11871313 (Version 1)
Quarter: 2015Q4

REPORT INFORMATION
  Report Type: Spontaneous
  Country: US (occurrence: None)
  Receive Date: 20151224
  Receipt Date: 20151224
  Transmission Date: 20160305
  Serious: Yes (Hospitalization)
  Sender: FDA-Public Use
  Company Number: None

PATIENT
  Age: 49 Year
  Sex: Male

DRUGS (15)
  1. ONDANSETRON [Concomitant]
     Active Substance: ONDANSETRON
  2. CASPOFUNGIN [Concomitant]
     Active Substance: CASPOFUNGIN
  3. HEPARIN [Concomitant]
     Active Substance: HEPARIN SODIUM
  4. MORPHINE [Concomitant]
     Active Substance: MORPHINE
  5. TEMAZEPAM. [Concomitant]
     Active Substance: TEMAZEPAM
  6. DEXTROMETHORPHAN [Concomitant]
     Active Substance: DEXTROMETHORPHAN
  7. VANCOMYCIN [Concomitant]
     Active Substance: VANCOMYCIN
  8. CEFEPIME [Concomitant]
     Active Substance: CEFEPIME HYDROCHLORIDE
  9. LOPERAMIDE [Concomitant]
     Active Substance: LOPERAMIDE
  10. IBRUTINIB [Suspect]
     Active Substance: IBRUTINIB
     Indication: NEOPLASM MALIGNANT
     Route: 048
     Dates: end: 20151102
  11. ACETAMINOPHEN. [Concomitant]
     Active Substance: ACETAMINOPHEN
  12. BENZONATATE. [Concomitant]
     Active Substance: BENZONATATE
  13. FILGRASTIM [Concomitant]
     Active Substance: FILGRASTIM
  14. GUAFENESIN [Concomitant]
     Active Substance: GUAIFENESIN
  15. OXYCODONE [Concomitant]
     Active Substance: OXYCODONE

REACTIONS (6)
  - Myalgia [None]
  - Paranasal sinus discomfort [None]
  - Tachycardia [None]
  - Pneumonia [None]
  - Febrile neutropenia [None]
  - Headache [None]

NARRATIVE: CASE EVENT DATE: 20151103
